FAERS Safety Report 5533789-9 (Version None)
Quarter: 2007Q4

REPORT INFORMATION
  Report Type: 
  Country: None (occurrence: None)
  Receive Date: 20071204
  Receipt Date: 20071127
  Transmission Date: 20080405
  Serious: Yes (Death, Other)
  Sender: FDA-Public Use
  Company Number: TR-ELI_LILLY_AND_COMPANY-TR200711006327

PATIENT
  Age: 68 Year
  Sex: Female
  Weight: 54 kg

DRUGS (2)
  1. LISPRO 25LIS75NPL [Suspect]
     Dosage: 14 U, EACH MORNING
     Route: 058
     Dates: start: 20070101
  2. LISPRO 25LIS75NPL [Suspect]
     Dosage: 10 U, EACH EVENING
     Route: 058
     Dates: start: 20070101

REACTIONS (3)
  - CEREBROVASCULAR ACCIDENT [None]
  - DEATH [None]
  - HYPERTENSION [None]
